FAERS Safety Report 12288444 (Version 1)
Quarter: 2016Q2

REPORT INFORMATION
  Report Type: Report from Study
  Country: CA (occurrence: CA)
  Receive Date: 20160420
  Receipt Date: 20160420
  Transmission Date: 20160815
  Serious: Yes (Other)
  Sender: FDA-Public Use
  Company Number: CA-GILEAD-2015-0183847

PATIENT
  Age: 59 Year
  Sex: Male

DRUGS (2)
  1. IBAVYR [Suspect]
     Active Substance: RIBAVIRIN
     Indication: HEPATITIS C
     Dosage: 1200 MG, UNK
     Route: 048
     Dates: start: 20141203, end: 20150225
  2. SOFOSBUVIR [Suspect]
     Active Substance: SOFOSBUVIR
     Indication: CHRONIC HEPATITIS C
     Dosage: 400 MG, UNK
     Route: 048
     Dates: start: 20141203, end: 20150225

REACTIONS (5)
  - Hepatic cirrhosis [Unknown]
  - Treatment failure [Unknown]
  - Hepatitis C [Unknown]
  - Drug ineffective [Unknown]
  - Hepatitis C RNA increased [Unknown]

NARRATIVE: CASE EVENT DATE: 2015
